FAERS Safety Report 11278390 (Version 3)
Quarter: 2016Q1

REPORT INFORMATION
  Report Type: Spontaneous
  Country: US (occurrence: US)
  Receive Date: 20150717
  Receipt Date: 20160114
  Transmission Date: 20160525
  Serious: Yes (Hospitalization)
  Sender: FDA-Public Use
  Company Number: PHEH2015US013736

PATIENT
  Sex: Female

DRUGS (5)
  1. PULMOZYME [Concomitant]
     Active Substance: DORNASE ALFA
     Indication: CYSTIC FIBROSIS
     Dosage: 1 DF (VIAL), QD
     Route: 055
     Dates: start: 20140429
  2. TOBI [Suspect]
     Active Substance: TOBRAMYCIN
     Indication: CYSTIC FIBROSIS
     Dosage: 1 DF (VIAL) BID, (28 ON AND 28 OFF)
     Route: 055
     Dates: start: 20140429
  3. SODIUM CHLORIDE. [Concomitant]
     Active Substance: SODIUM CHLORIDE
     Indication: CYSTIC FIBROSIS
     Route: 065
  4. CREON 24000 [Concomitant]
     Indication: CYSTIC FIBROSIS
     Dosage: 7 DF (CAPSULES ) QD
     Route: 048
     Dates: start: 20140429
  5. VITAMAX [Concomitant]
     Indication: CYSTIC FIBROSIS
     Dosage: 2 DF (TABS) QD
     Route: 048
     Dates: start: 20140424

REACTIONS (1)
  - Cystic fibrosis [Unknown]
